FAERS Safety Report 15042087 (Version 4)
Quarter: 2019Q2

REPORT INFORMATION
  Report Type: Spontaneous
  Country: US (occurrence: US)
  Receive Date: 20180621
  Receipt Date: 20190508
  Transmission Date: 20190711
  Serious: No
  Sender: FDA-Public Use
  Company Number: US-PFIZER INC-2018249524

PATIENT
  Age: 82 Year
  Sex: Female

DRUGS (1)
  1. XELJANZ [Suspect]
     Active Substance: TOFACITINIB CITRATE
     Dosage: 5 MG, DAILY

REACTIONS (4)
  - Drug ineffective [Unknown]
  - White blood cell count decreased [Unknown]
  - Hand deformity [Unknown]
  - Anaemia [Unknown]
